FAERS Safety Report 6094361-8 (Version None)
Quarter: 2009Q1

REPORT INFORMATION
  Report Type: 
  Country: None (occurrence: None)
  Receive Date: 20090224
  Receipt Date: 20090218
  Transmission Date: 20090719
  Serious: Yes (Hospitalization)
  Sender: FDA-Public Use
  Company Number: TCI2009A00493

PATIENT
  Age: 75 Year
  Sex: Female

DRUGS (6)
  1. ACTOS [Suspect]
     Indication: TYPE 2 DIABETES MELLITUS
     Dosage: 15 MG (15 MG, 1 IN 1 D), PER ORAL
     Route: 048
     Dates: start: 20090204, end: 20090210
  2. ISOSORBIDE MONONITRATE [Concomitant]
  3. CARBIDOPA AND LEVODOPA [Concomitant]
  4. DIOVAN [Concomitant]
  5. AMLODIPINE [Concomitant]
  6. RABEPRAZOLE SODIUM [Concomitant]

REACTIONS (3)
  - ATRIAL FIBRILLATION [None]
  - DIABETES MELLITUS INADEQUATE CONTROL [None]
  - DYSPNOEA [None]
